FAERS Safety Report 9587668 (Version 1)
Quarter: 2013Q4

REPORT INFORMATION
  Report Type: Spontaneous
  Country: US (occurrence: US)
  Receive Date: 20131003
  Receipt Date: 20131003
  Transmission Date: 20140711
  Serious: Yes (Other)
  Sender: FDA-Public Use
  Company Number: US-BAXTER-2013BAX038174

PATIENT
  Age: 28 Year
  Sex: Female

DRUGS (5)
  1. CYCLOPHOSPHAMIDE FOR INJECTION, USP [Suspect]
     Indication: NON-HODGKIN^S LYMPHOMA
     Dosage: AT 8, 5, AND 2 WEEKS PRIOR TO DELIVERY
     Route: 065
  2. RITUXIMAB [Suspect]
     Indication: NON-HODGKIN^S LYMPHOMA
     Dosage: AT 8, 5, AND 2 WEEKS PRIOR TO DELIVERY
     Route: 065
  3. DOXORUBICIN [Suspect]
     Indication: NON-HODGKIN^S LYMPHOMA
     Dosage: AT 8, 5, AND 2 WEEKS PRIOR TO DELIVERY
     Route: 065
  4. VINCRISTINE [Suspect]
     Indication: NON-HODGKIN^S LYMPHOMA
     Dosage: AT 8, 5, AND 2 WEEKS PRIOR TO DELIVERY
     Route: 065
  5. PREDNISONE [Suspect]
     Indication: NON-HODGKIN^S LYMPHOMA
     Dosage: AT 8, 5, AND 2 WEEKS PRIOR TO DELIVERY
     Route: 065

REACTIONS (1)
  - Exposure during pregnancy [Recovered/Resolved]
